FAERS Safety Report 8814913 (Version 1)
Quarter: 2012Q4

REPORT INFORMATION
  Report Type: 
  Country: ZA (occurrence: ZA)
  Receive Date: 20120928
  Receipt Date: 20120928
  Transmission Date: 20130627
  Serious: Yes (Death, Hospitalization)
  Sender: FDA-Public Use
  Company Number: ZA-ROCHE-1116381

PATIENT
  Sex: Female

DRUGS (5)
  1. PEGASYS [Suspect]
     Indication: HEPATITIS C
     Dosage: dose reduced
     Route: 065
     Dates: start: 20120305, end: 20120710
  2. PEGASYS [Suspect]
     Route: 065
     Dates: start: 20120710, end: 20120903
  3. COPEGUS [Suspect]
     Indication: HEPATITIS C
     Dosage: dose reduced
     Route: 065
     Dates: start: 20120305, end: 20120710
  4. COPEGUS [Suspect]
     Route: 065
     Dates: start: 20120710, end: 20120903
  5. RECORMON [Suspect]
     Indication: HAEMOGLOBIN DECREASED
     Route: 065
     Dates: start: 201205

REACTIONS (3)
  - Death [Fatal]
  - Haemoglobin decreased [Unknown]
  - Pyrexia [Unknown]
